FAERS Safety Report 6103802-9 (Version None)
Quarter: 2009Q1

REPORT INFORMATION
  Report Type: 
  Country: None (occurrence: None)
  Receive Date: 20090305
  Receipt Date: 20090219
  Transmission Date: 20090719
  Serious: Yes (Hospitalization, Other)
  Sender: FDA-Public Use
  Company Number: US-ELI_LILLY_AND_COMPANY-US200901000499

PATIENT
  Sex: Female
  Weight: 49.887 kg

DRUGS (10)
  1. FORTEO [Suspect]
     Indication: OSTEOPOROSIS
     Dosage: UNK, UNK
     Dates: start: 20080930, end: 20081031
  2. FORTEO [Suspect]
     Dates: start: 20081101
  3. DIOVAN [Concomitant]
  4. THYROID TAB [Concomitant]
  5. CELEBREX [Concomitant]
  6. CALCIUM [Concomitant]
  7. VITAMIN D [Concomitant]
  8. RESTORIL [Concomitant]
  9. VICODIN [Concomitant]
  10. ZEGERID [Concomitant]

REACTIONS (2)
  - ABDOMINAL ADHESIONS [None]
  - ARTHRALGIA [None]
